FAERS Safety Report 5139340-X (Version None)
Quarter: 2006Q4

REPORT INFORMATION
  Report Type: 
  Country: None (occurrence: None)
  Receive Date: 20061024
  Receipt Date: 20061011
  Transmission Date: 20070319
  Serious: Yes (Hospitalization)
  Sender: FDA-Public Use
  Company Number: 231077

PATIENT
  Age: 74 Year
  Sex: Male

DRUGS (9)
  1. AVASTIN [Suspect]
     Indication: NEUROENDOCRINE CARCINOMA
     Dosage: 435 MG, Q2W, INTRAVENOUS
     Route: 042
     Dates: start: 20060712, end: 20060927
  2. FLUOROURACIL [Suspect]
     Indication: NEUROENDOCRINE CARCINOMA
     Dosage: 4800 MG, Q2W, INTRAVENOUS
     Route: 042
     Dates: start: 20060712, end: 20060927
  3. OXALIPLATIN [Suspect]
     Indication: NEUROENDOCRINE CARCINOMA
     Dosage: 170 MG, Q2W, INTRAVENOUS
     Route: 042
     Dates: start: 20060712, end: 20060927
  4. LEUCOVORIN CALCIUM [Suspect]
     Indication: NEUROENDOCRINE CARCINOMA
     Dosage: 400 MG, Q2W, INTRAVENOUS
     Route: 042
     Dates: start: 20060712, end: 20060927
  5. SANDOSTATIN LAR (OCTREOTIDE ACETATE) [Concomitant]
  6. LASIX [Concomitant]
  7. ACYCLOVIR [Concomitant]
  8. IMODIUM [Concomitant]
  9. LOMOTIL [Concomitant]

REACTIONS (5)
  - ANAEMIA [None]
  - ASCITES [None]
  - LABORATORY TEST INTERFERENCE [None]
  - LIVER FUNCTION TEST ABNORMAL [None]
  - PERFORMANCE STATUS DECREASED [None]
